FAERS Safety Report 25165235 (Version 4)
Quarter: 2025Q3

REPORT INFORMATION
  Report Type: Spontaneous
  Country: US (occurrence: US)
  Receive Date: 20250407
  Receipt Date: 20250804
  Transmission Date: 20251021
  Serious: No
  Sender: BRISTOL-MYERS SQUIBB COMPANY
  Company Number: US-BRISTOL-MYERS SQUIBB COMPANY-2025-050874

PATIENT
  Age: 70 Year
  Sex: Male

DRUGS (4)
  1. AUGTYRO [Suspect]
     Active Substance: REPOTRECTINIB
     Indication: Product used for unknown indication
     Route: 048
  2. AUGTYRO [Suspect]
     Active Substance: REPOTRECTINIB
     Route: 048
  3. AUGTYRO [Suspect]
     Active Substance: REPOTRECTINIB
     Route: 048
  4. AUGTYRO [Suspect]
     Active Substance: REPOTRECTINIB
     Route: 048

REACTIONS (6)
  - Influenza [Unknown]
  - Balance disorder [Unknown]
  - Skin burning sensation [Unknown]
  - Constipation [Unknown]
  - Ageusia [Unknown]
  - Memory impairment [Unknown]

NARRATIVE: CASE EVENT DATE: 20250329
